FAERS Safety Report 9324727 (Version 3)
Quarter: 2014Q1

REPORT INFORMATION
  Report Type: Spontaneous
  Country: US (occurrence: US)
  Receive Date: 20130603
  Receipt Date: 20140306
  Transmission Date: 20141002
  Serious: Yes (Hospitalization)
  Sender: FDA-Public Use
  Company Number: US-B.I. PHARMACEUTICALS,INC./RIDGEFIELD-2013-BI-15301BP

PATIENT
  Age: 48 Year
  Sex: Male
  Weight: 195 kg

DRUGS (8)
  1. PRADAXA [Suspect]
     Indication: CEREBROVASCULAR ACCIDENT PROPHYLAXIS
     Dosage: 300 MG
     Route: 065
     Dates: start: 20110518, end: 20110529
  2. HYDROCODONE/APAP [Concomitant]
     Route: 065
  3. SOTALOL [Concomitant]
     Indication: ATRIAL FIBRILLATION
     Route: 065
  4. MELOXICAM [Concomitant]
     Route: 065
  5. IBUPROFEN [Concomitant]
     Route: 065
  6. ASPIRIN [Concomitant]
     Route: 065
  7. MULTIVITAMINS [Concomitant]
     Route: 065
  8. GLUCOSAMINE [Concomitant]
     Route: 065

REACTIONS (5)
  - Haemorrhage [Unknown]
  - Vascular pseudoaneurysm [Recovered/Resolved]
  - Cellulitis [Recovered/Resolved]
  - Thrombophlebitis superficial [Unknown]
  - Contusion [Recovered/Resolved]
